FAERS Safety Report 6197362-4 (Version None)
Quarter: 2009Q2

REPORT INFORMATION
  Report Type: 
  Country: None (occurrence: None)
  Receive Date: 20090518
  Receipt Date: 20090511
  Transmission Date: 20091009
  Serious: Yes (Death, Other)
  Sender: FDA-Public Use
  Company Number: 1000006190

PATIENT
  Age: 67 Year
  Sex: Male

DRUGS (1)
  1. LEXAPRO [Suspect]

REACTIONS (1)
  - HEPATIC ENZYME INCREASED [None]
